FAERS Safety Report 17450142 (Version 17)
Quarter: 2023Q2

REPORT INFORMATION
  Report Type: Spontaneous
  Country: CA (occurrence: None)
  Receive Date: 20200224
  Receipt Date: 20230614
  Transmission Date: 20230722
  Serious: Yes (Death, Life-Threatening, Hospitalization, Disabling, Other)
  Sender: FDA-Public Use
  Company Number: CA-ORION CORPORATION ORION PHARMA-TREX2016-1058

PATIENT
  Age: 43 Year
  Sex: Female
  Weight: 96 kg

DRUGS (714)
  1. METHOTREXATE [Suspect]
     Active Substance: METHOTREXATE
     Indication: Rheumatoid arthritis
     Dates: start: 2012, end: 2014
  2. METHOTREXATE [Suspect]
     Active Substance: METHOTREXATE
  3. METHOTREXATE [Suspect]
     Active Substance: METHOTREXATE
  4. METHOTREXATE [Suspect]
     Active Substance: METHOTREXATE
  5. METHOTREXATE [Suspect]
     Active Substance: METHOTREXATE
  6. METHOTREXATE [Suspect]
     Active Substance: METHOTREXATE
  7. METHOTREXATE [Suspect]
     Active Substance: METHOTREXATE
  8. METHOTREXATE [Suspect]
     Active Substance: METHOTREXATE
     Dates: start: 2015, end: 2016
  9. METHOTREXATE [Suspect]
     Active Substance: METHOTREXATE
  10. METHOTREXATE [Suspect]
     Active Substance: METHOTREXATE
  11. METHOTREXATE [Suspect]
     Active Substance: METHOTREXATE
  12. METHOTREXATE [Suspect]
     Active Substance: METHOTREXATE
  13. METHOTREXATE [Suspect]
     Active Substance: METHOTREXATE
  14. METHOTREXATE [Suspect]
     Active Substance: METHOTREXATE
  15. METHOTREXATE [Suspect]
     Active Substance: METHOTREXATE
  16. METHOTREXATE [Suspect]
     Active Substance: METHOTREXATE
  17. METHOTREXATE [Suspect]
     Active Substance: METHOTREXATE
  18. METHOTREXATE [Suspect]
     Active Substance: METHOTREXATE
  19. METHOTREXATE [Suspect]
     Active Substance: METHOTREXATE
  20. METHOTREXATE [Suspect]
     Active Substance: METHOTREXATE
  21. METHOTREXATE [Suspect]
     Active Substance: METHOTREXATE
  22. METHOTREXATE [Suspect]
     Active Substance: METHOTREXATE
  23. METHOTREXATE [Suspect]
     Active Substance: METHOTREXATE
  24. METHOTREXATE [Suspect]
     Active Substance: METHOTREXATE
  25. METHOTREXATE [Suspect]
     Active Substance: METHOTREXATE
  26. ENBREL [Suspect]
     Active Substance: ETANERCEPT
     Indication: Rheumatoid arthritis
  27. ENBREL [Suspect]
     Active Substance: ETANERCEPT
  28. ENBREL [Suspect]
     Active Substance: ETANERCEPT
  29. ENBREL [Suspect]
     Active Substance: ETANERCEPT
  30. ENBREL [Suspect]
     Active Substance: ETANERCEPT
     Dosage: CYCLICAL
  31. ENBREL [Suspect]
     Active Substance: ETANERCEPT
  32. ENBREL [Suspect]
     Active Substance: ETANERCEPT
  33. PLAQUENIL [Suspect]
     Active Substance: HYDROXYCHLOROQUINE SULFATE
     Indication: Rheumatoid arthritis
     Dates: start: 2012
  34. PLAQUENIL [Suspect]
     Active Substance: HYDROXYCHLOROQUINE SULFATE
  35. PLAQUENIL [Suspect]
     Active Substance: HYDROXYCHLOROQUINE SULFATE
  36. PLAQUENIL [Suspect]
     Active Substance: HYDROXYCHLOROQUINE SULFATE
  37. PLAQUENIL [Suspect]
     Active Substance: HYDROXYCHLOROQUINE SULFATE
  38. PLAQUENIL [Suspect]
     Active Substance: HYDROXYCHLOROQUINE SULFATE
  39. PLAQUENIL [Suspect]
     Active Substance: HYDROXYCHLOROQUINE SULFATE
  40. PLAQUENIL [Suspect]
     Active Substance: HYDROXYCHLOROQUINE SULFATE
  41. PLAQUENIL [Suspect]
     Active Substance: HYDROXYCHLOROQUINE SULFATE
  42. PLAQUENIL [Suspect]
     Active Substance: HYDROXYCHLOROQUINE SULFATE
  43. PLAQUENIL [Suspect]
     Active Substance: HYDROXYCHLOROQUINE SULFATE
  44. PLAQUENIL [Suspect]
     Active Substance: HYDROXYCHLOROQUINE SULFATE
  45. ARAVA [Suspect]
     Active Substance: LEFLUNOMIDE
     Indication: Rheumatoid arthritis
  46. ARAVA [Suspect]
     Active Substance: LEFLUNOMIDE
  47. ARAVA [Suspect]
     Active Substance: LEFLUNOMIDE
  48. ARAVA [Suspect]
     Active Substance: LEFLUNOMIDE
  49. ARAVA [Suspect]
     Active Substance: LEFLUNOMIDE
  50. ARAVA [Suspect]
     Active Substance: LEFLUNOMIDE
  51. ARAVA [Suspect]
     Active Substance: LEFLUNOMIDE
  52. ARAVA [Suspect]
     Active Substance: LEFLUNOMIDE
  53. ARAVA [Suspect]
     Active Substance: LEFLUNOMIDE
  54. ARAVA [Suspect]
     Active Substance: LEFLUNOMIDE
     Dosage: ENDOCERVICAL
  55. ARAVA [Suspect]
     Active Substance: LEFLUNOMIDE
  56. ARAVA [Suspect]
     Active Substance: LEFLUNOMIDE
  57. ARAVA [Suspect]
     Active Substance: LEFLUNOMIDE
  58. ARAVA [Suspect]
     Active Substance: LEFLUNOMIDE
  59. ARAVA [Suspect]
     Active Substance: LEFLUNOMIDE
  60. CIMZIA [Suspect]
     Active Substance: CERTOLIZUMAB PEGOL
     Indication: Rheumatoid arthritis
  61. CIMZIA [Suspect]
     Active Substance: CERTOLIZUMAB PEGOL
  62. CIMZIA [Suspect]
     Active Substance: CERTOLIZUMAB PEGOL
  63. CIMZIA [Suspect]
     Active Substance: CERTOLIZUMAB PEGOL
  64. CIMZIA [Suspect]
     Active Substance: CERTOLIZUMAB PEGOL
  65. CIMZIA [Suspect]
     Active Substance: CERTOLIZUMAB PEGOL
  66. CIMZIA [Suspect]
     Active Substance: CERTOLIZUMAB PEGOL
  67. CIMZIA [Suspect]
     Active Substance: CERTOLIZUMAB PEGOL
  68. CIMZIA [Suspect]
     Active Substance: CERTOLIZUMAB PEGOL
  69. CIMZIA [Suspect]
     Active Substance: CERTOLIZUMAB PEGOL
  70. CIMZIA [Suspect]
     Active Substance: CERTOLIZUMAB PEGOL
  71. CIMZIA [Suspect]
     Active Substance: CERTOLIZUMAB PEGOL
  72. CIMZIA [Suspect]
     Active Substance: CERTOLIZUMAB PEGOL
  73. CIMZIA [Suspect]
     Active Substance: CERTOLIZUMAB PEGOL
  74. ORENCIA [Suspect]
     Active Substance: ABATACEPT
     Indication: Rheumatoid arthritis
  75. ORENCIA [Suspect]
     Active Substance: ABATACEPT
  76. ORENCIA [Suspect]
     Active Substance: ABATACEPT
  77. ORENCIA [Suspect]
     Active Substance: ABATACEPT
  78. ORENCIA [Suspect]
     Active Substance: ABATACEPT
  79. ORENCIA [Suspect]
     Active Substance: ABATACEPT
  80. ORENCIA [Suspect]
     Active Substance: ABATACEPT
  81. ORENCIA [Suspect]
     Active Substance: ABATACEPT
  82. ORENCIA [Suspect]
     Active Substance: ABATACEPT
  83. ORENCIA [Suspect]
     Active Substance: ABATACEPT
  84. ORENCIA [Suspect]
     Active Substance: ABATACEPT
  85. ORENCIA [Suspect]
     Active Substance: ABATACEPT
  86. ORENCIA [Suspect]
     Active Substance: ABATACEPT
  87. ORENCIA [Suspect]
     Active Substance: ABATACEPT
  88. ORENCIA [Suspect]
     Active Substance: ABATACEPT
  89. ORENCIA [Suspect]
     Active Substance: ABATACEPT
  90. ORENCIA [Suspect]
     Active Substance: ABATACEPT
  91. ORENCIA [Suspect]
     Active Substance: ABATACEPT
  92. ORENCIA [Suspect]
     Active Substance: ABATACEPT
     Dates: start: 2012
  93. ORENCIA [Suspect]
     Active Substance: ABATACEPT
  94. ORENCIA [Suspect]
     Active Substance: ABATACEPT
     Dates: start: 2012
  95. ORENCIA [Suspect]
     Active Substance: ABATACEPT
  96. ORENCIA [Suspect]
     Active Substance: ABATACEPT
  97. ORENCIA [Suspect]
     Active Substance: ABATACEPT
     Dates: start: 2012
  98. ORENCIA [Suspect]
     Active Substance: ABATACEPT
  99. ORENCIA [Suspect]
     Active Substance: ABATACEPT
  100. ACTEMRA [Suspect]
     Active Substance: TOCILIZUMAB
     Indication: Rheumatoid arthritis
     Dates: end: 201511
  101. ACTEMRA [Suspect]
     Active Substance: TOCILIZUMAB
  102. ACTEMRA [Suspect]
     Active Substance: TOCILIZUMAB
     Dates: end: 201511
  103. ACTEMRA [Suspect]
     Active Substance: TOCILIZUMAB
  104. ACTEMRA [Suspect]
     Active Substance: TOCILIZUMAB
     Dates: end: 201511
  105. ACTEMRA [Suspect]
     Active Substance: TOCILIZUMAB
  106. ACTEMRA [Suspect]
     Active Substance: TOCILIZUMAB
  107. ACTEMRA [Suspect]
     Active Substance: TOCILIZUMAB
  108. ACTEMRA [Suspect]
     Active Substance: TOCILIZUMAB
  109. ACTEMRA [Suspect]
     Active Substance: TOCILIZUMAB
  110. ACTEMRA [Suspect]
     Active Substance: TOCILIZUMAB
  111. ACTEMRA [Suspect]
     Active Substance: TOCILIZUMAB
  112. ACTEMRA [Suspect]
     Active Substance: TOCILIZUMAB
  113. ACTEMRA [Suspect]
     Active Substance: TOCILIZUMAB
  114. ACTEMRA [Suspect]
     Active Substance: TOCILIZUMAB
  115. ACTEMRA [Suspect]
     Active Substance: TOCILIZUMAB
  116. ACTEMRA [Suspect]
     Active Substance: TOCILIZUMAB
  117. ACTEMRA [Suspect]
     Active Substance: TOCILIZUMAB
  118. ACTEMRA [Suspect]
     Active Substance: TOCILIZUMAB
  119. ACTEMRA [Suspect]
     Active Substance: TOCILIZUMAB
  120. ACTEMRA [Suspect]
     Active Substance: TOCILIZUMAB
  121. ACTEMRA [Suspect]
     Active Substance: TOCILIZUMAB
  122. ACTEMRA [Suspect]
     Active Substance: TOCILIZUMAB
  123. ACTEMRA [Suspect]
     Active Substance: TOCILIZUMAB
  124. ACTEMRA [Suspect]
     Active Substance: TOCILIZUMAB
  125. FOSAMAX [Suspect]
     Active Substance: ALENDRONATE SODIUM
     Indication: Rheumatoid arthritis
  126. FOSAMAX [Suspect]
     Active Substance: ALENDRONATE SODIUM
  127. FOSAMAX [Suspect]
     Active Substance: ALENDRONATE SODIUM
  128. FOSAMAX [Suspect]
     Active Substance: ALENDRONATE SODIUM
  129. FOSAMAX [Suspect]
     Active Substance: ALENDRONATE SODIUM
  130. FOSAMAX [Suspect]
     Active Substance: ALENDRONATE SODIUM
  131. FOSAMAX [Suspect]
     Active Substance: ALENDRONATE SODIUM
  132. FOSAMAX [Suspect]
     Active Substance: ALENDRONATE SODIUM
  133. FOSAMAX [Suspect]
     Active Substance: ALENDRONATE SODIUM
  134. FOSAMAX [Suspect]
     Active Substance: ALENDRONATE SODIUM
  135. FOSAMAX [Suspect]
     Active Substance: ALENDRONATE SODIUM
  136. FOSAMAX [Suspect]
     Active Substance: ALENDRONATE SODIUM
  137. FOSAMAX [Suspect]
     Active Substance: ALENDRONATE SODIUM
  138. ACETAMINOPHEN [Suspect]
     Active Substance: ACETAMINOPHEN
     Indication: Product used for unknown indication
  139. CETIRIZINE HYDROCHLORIDE [Suspect]
     Active Substance: CETIRIZINE HYDROCHLORIDE
     Indication: Rheumatoid arthritis
  140. CETIRIZINE HYDROCHLORIDE [Suspect]
     Active Substance: CETIRIZINE HYDROCHLORIDE
  141. CETIRIZINE HYDROCHLORIDE [Suspect]
     Active Substance: CETIRIZINE HYDROCHLORIDE
  142. CETIRIZINE HYDROCHLORIDE [Suspect]
     Active Substance: CETIRIZINE HYDROCHLORIDE
  143. CETIRIZINE HYDROCHLORIDE [Suspect]
     Active Substance: CETIRIZINE HYDROCHLORIDE
  144. CETIRIZINE HYDROCHLORIDE [Suspect]
     Active Substance: CETIRIZINE HYDROCHLORIDE
  145. CETIRIZINE HYDROCHLORIDE [Suspect]
     Active Substance: CETIRIZINE HYDROCHLORIDE
  146. CETIRIZINE HYDROCHLORIDE [Suspect]
     Active Substance: CETIRIZINE HYDROCHLORIDE
  147. CETIRIZINE HYDROCHLORIDE [Suspect]
     Active Substance: CETIRIZINE HYDROCHLORIDE
  148. CETIRIZINE HYDROCHLORIDE [Suspect]
     Active Substance: CETIRIZINE HYDROCHLORIDE
  149. CETIRIZINE HYDROCHLORIDE\PSEUDOEPHEDRINE HYDROCHLORIDE [Suspect]
     Active Substance: CETIRIZINE HYDROCHLORIDE\PSEUDOEPHEDRINE HYDROCHLORIDE
     Indication: Rheumatoid arthritis
  150. CETIRIZINE HYDROCHLORIDE\PSEUDOEPHEDRINE HYDROCHLORIDE [Suspect]
     Active Substance: CETIRIZINE HYDROCHLORIDE\PSEUDOEPHEDRINE HYDROCHLORIDE
  151. CETIRIZINE HYDROCHLORIDE\PSEUDOEPHEDRINE HYDROCHLORIDE [Suspect]
     Active Substance: CETIRIZINE HYDROCHLORIDE\PSEUDOEPHEDRINE HYDROCHLORIDE
  152. CORTISONE ACETATE [Suspect]
     Active Substance: CORTISONE ACETATE
     Indication: Rheumatoid arthritis
  153. CORTISONE ACETATE [Suspect]
     Active Substance: CORTISONE ACETATE
  154. CORTISONE ACETATE [Suspect]
     Active Substance: CORTISONE ACETATE
  155. CORTISONE ACETATE [Suspect]
     Active Substance: CORTISONE ACETATE
  156. CORTISONE ACETATE [Suspect]
     Active Substance: CORTISONE ACETATE
  157. CORTISONE ACETATE [Suspect]
     Active Substance: CORTISONE ACETATE
  158. CORTISONE ACETATE [Suspect]
     Active Substance: CORTISONE ACETATE
  159. CORTISONE ACETATE [Suspect]
     Active Substance: CORTISONE ACETATE
  160. CORTISONE ACETATE [Suspect]
     Active Substance: CORTISONE ACETATE
  161. CORTISONE ACETATE [Suspect]
     Active Substance: CORTISONE ACETATE
  162. CORTISONE ACETATE [Suspect]
     Active Substance: CORTISONE ACETATE
  163. CORTISONE ACETATE [Suspect]
     Active Substance: CORTISONE ACETATE
  164. CORTISONE ACETATE [Suspect]
     Active Substance: CORTISONE ACETATE
  165. CORTISONE ACETATE [Suspect]
     Active Substance: CORTISONE ACETATE
  166. DESOXIMETASONE [Suspect]
     Active Substance: DESOXIMETASONE
     Indication: Rheumatoid arthritis
  167. DESOXIMETASONE [Suspect]
     Active Substance: DESOXIMETASONE
  168. DESOXIMETASONE [Suspect]
     Active Substance: DESOXIMETASONE
  169. DESOXIMETASONE [Suspect]
     Active Substance: DESOXIMETASONE
  170. DESOXIMETASONE [Suspect]
     Active Substance: DESOXIMETASONE
  171. DESOXIMETASONE [Suspect]
     Active Substance: DESOXIMETASONE
  172. DESOXIMETASONE [Suspect]
     Active Substance: DESOXIMETASONE
  173. DESOXIMETASONE [Suspect]
     Active Substance: DESOXIMETASONE
  174. DESOXIMETASONE [Suspect]
     Active Substance: DESOXIMETASONE
  175. DESOXIMETASONE [Suspect]
     Active Substance: DESOXIMETASONE
  176. DESOXIMETASONE [Suspect]
     Active Substance: DESOXIMETASONE
  177. DESOXIMETASONE [Suspect]
     Active Substance: DESOXIMETASONE
  178. DESOXIMETASONE [Suspect]
     Active Substance: DESOXIMETASONE
  179. DESOXIMETASONE [Suspect]
     Active Substance: DESOXIMETASONE
  180. DESOXIMETASONE [Suspect]
     Active Substance: DESOXIMETASONE
  181. DICLOFENAC [Suspect]
     Active Substance: DICLOFENAC
     Indication: Product used for unknown indication
  182. DICLOFENAC [Suspect]
     Active Substance: DICLOFENAC
  183. DICLOFENAC [Suspect]
     Active Substance: DICLOFENAC
  184. DICLOFENAC [Suspect]
     Active Substance: DICLOFENAC
  185. DICLOFENAC [Suspect]
     Active Substance: DICLOFENAC
  186. FOLIC ACID [Suspect]
     Active Substance: FOLIC ACID
     Indication: Rheumatoid arthritis
  187. FOLIC ACID [Suspect]
     Active Substance: FOLIC ACID
  188. FOLIC ACID [Suspect]
     Active Substance: FOLIC ACID
  189. FOLIC ACID [Suspect]
     Active Substance: FOLIC ACID
  190. FOLIC ACID [Suspect]
     Active Substance: FOLIC ACID
  191. FOLIC ACID [Suspect]
     Active Substance: FOLIC ACID
  192. FOLIC ACID [Suspect]
     Active Substance: FOLIC ACID
  193. FOLIC ACID [Suspect]
     Active Substance: FOLIC ACID
  194. FOLIC ACID [Suspect]
     Active Substance: FOLIC ACID
  195. FOLIC ACID [Suspect]
     Active Substance: FOLIC ACID
  196. FOLIC ACID [Suspect]
     Active Substance: FOLIC ACID
  197. FOLIC ACID [Suspect]
     Active Substance: FOLIC ACID
  198. FOLIC ACID [Suspect]
     Active Substance: FOLIC ACID
  199. FOLIC ACID [Suspect]
     Active Substance: FOLIC ACID
  200. FOLIC ACID [Suspect]
     Active Substance: FOLIC ACID
  201. FOLIC ACID [Suspect]
     Active Substance: FOLIC ACID
  202. FOLIC ACID [Suspect]
     Active Substance: FOLIC ACID
  203. FOLIC ACID [Suspect]
     Active Substance: FOLIC ACID
  204. FOLIC ACID [Suspect]
     Active Substance: FOLIC ACID
  205. FOLIC ACID [Suspect]
     Active Substance: FOLIC ACID
  206. FOLIC ACID [Suspect]
     Active Substance: FOLIC ACID
  207. FOLIC ACID [Suspect]
     Active Substance: FOLIC ACID
  208. FOLIC ACID [Suspect]
     Active Substance: FOLIC ACID
  209. FOLIC ACID [Suspect]
     Active Substance: FOLIC ACID
  210. FOLIC ACID [Suspect]
     Active Substance: FOLIC ACID
  211. FOLIC ACID [Suspect]
     Active Substance: FOLIC ACID
  212. FOLIC ACID [Suspect]
     Active Substance: FOLIC ACID
  213. FOLIC ACID [Suspect]
     Active Substance: FOLIC ACID
  214. HUMIRA [Suspect]
     Active Substance: ADALIMUMAB
     Indication: Rheumatoid arthritis
  215. HUMIRA [Suspect]
     Active Substance: ADALIMUMAB
     Indication: Psoriatic arthropathy
  216. HUMIRA [Suspect]
     Active Substance: ADALIMUMAB
  217. HUMIRA [Suspect]
     Active Substance: ADALIMUMAB
  218. HUMIRA [Suspect]
     Active Substance: ADALIMUMAB
  219. HUMIRA [Suspect]
     Active Substance: ADALIMUMAB
  220. HUMIRA [Suspect]
     Active Substance: ADALIMUMAB
  221. HUMIRA [Suspect]
     Active Substance: ADALIMUMAB
  222. HUMIRA [Suspect]
     Active Substance: ADALIMUMAB
  223. HUMIRA [Suspect]
     Active Substance: ADALIMUMAB
  224. HUMIRA [Suspect]
     Active Substance: ADALIMUMAB
  225. HUMIRA [Suspect]
     Active Substance: ADALIMUMAB
  226. HYDROXYCHLOROQUINE [Suspect]
     Active Substance: HYDROXYCHLOROQUINE
     Indication: Rheumatoid arthritis
  227. HYDROXYCHLOROQUINE [Suspect]
     Active Substance: HYDROXYCHLOROQUINE
  228. HYDROXYCHLOROQUINE [Suspect]
     Active Substance: HYDROXYCHLOROQUINE
  229. HYDROXYCHLOROQUINE [Suspect]
     Active Substance: HYDROXYCHLOROQUINE
  230. HYDROXYCHLOROQUINE [Suspect]
     Active Substance: HYDROXYCHLOROQUINE
  231. HYDROXYCHLOROQUINE [Suspect]
     Active Substance: HYDROXYCHLOROQUINE
  232. HYDROXYCHLOROQUINE [Suspect]
     Active Substance: HYDROXYCHLOROQUINE
  233. HYDROXYCHLOROQUINE [Suspect]
     Active Substance: HYDROXYCHLOROQUINE
  234. HYDROXYCHLOROQUINE [Suspect]
     Active Substance: HYDROXYCHLOROQUINE
  235. HYDROXYCHLOROQUINE [Suspect]
     Active Substance: HYDROXYCHLOROQUINE
  236. HYDROXYCHLOROQUINE [Suspect]
     Active Substance: HYDROXYCHLOROQUINE
  237. HYDROXYCHLOROQUINE [Suspect]
     Active Substance: HYDROXYCHLOROQUINE
  238. HYDROXYCHLOROQUINE [Suspect]
     Active Substance: HYDROXYCHLOROQUINE
  239. HYDROXYCHLOROQUINE [Suspect]
     Active Substance: HYDROXYCHLOROQUINE
  240. HYDROXYCHLOROQUINE [Suspect]
     Active Substance: HYDROXYCHLOROQUINE
  241. HYDROXYCHLOROQUINE [Suspect]
     Active Substance: HYDROXYCHLOROQUINE
     Dosage: UNK (TABLET) (ENDOCERVICAL)
  242. HYDROXYCHLOROQUINE [Suspect]
     Active Substance: HYDROXYCHLOROQUINE
  243. HYDROXYCHLOROQUINE [Suspect]
     Active Substance: HYDROXYCHLOROQUINE
  244. HYDROXYCHLOROQUINE [Suspect]
     Active Substance: HYDROXYCHLOROQUINE
  245. HYDROXYCHLOROQUINE [Suspect]
     Active Substance: HYDROXYCHLOROQUINE
  246. HYDROXYCHLOROQUINE [Suspect]
     Active Substance: HYDROXYCHLOROQUINE
  247. HYDROXYCHLOROQUINE [Suspect]
     Active Substance: HYDROXYCHLOROQUINE
     Dosage: UNK (TABLET) (ENDOCERVICAL)
  248. HYDROXYCHLOROQUINE [Suspect]
     Active Substance: HYDROXYCHLOROQUINE
  249. HYDROXYCHLOROQUINE [Suspect]
     Active Substance: HYDROXYCHLOROQUINE
  250. HYDROXYCHLOROQUINE [Suspect]
     Active Substance: HYDROXYCHLOROQUINE
  251. HYDROXYCHLOROQUINE [Suspect]
     Active Substance: HYDROXYCHLOROQUINE
  252. HYDROXYCHLOROQUINE [Suspect]
     Active Substance: HYDROXYCHLOROQUINE
  253. HYDROXYCHLOROQUINE [Suspect]
     Active Substance: HYDROXYCHLOROQUINE
  254. HYDROXYCHLOROQUINE [Suspect]
     Active Substance: HYDROXYCHLOROQUINE
  255. HYDROXYCHLOROQUINE [Suspect]
     Active Substance: HYDROXYCHLOROQUINE
  256. HYDROXYCHLOROQUINE [Suspect]
     Active Substance: HYDROXYCHLOROQUINE
  257. HYDROXYCHLOROQUINE [Suspect]
     Active Substance: HYDROXYCHLOROQUINE
  258. HYDROXYCHLOROQUINE [Suspect]
     Active Substance: HYDROXYCHLOROQUINE
  259. HYDROXYCHLOROQUINE [Suspect]
     Active Substance: HYDROXYCHLOROQUINE
     Dosage: UNK (TABLET) (ENDOCERVICAL)
  260. HYDROXYCHLOROQUINE [Suspect]
     Active Substance: HYDROXYCHLOROQUINE
  261. HYDROXYCHLOROQUINE [Suspect]
     Active Substance: HYDROXYCHLOROQUINE
  262. PHTHALYLSULFATHIAZOLE [Suspect]
     Active Substance: PHTHALYLSULFATHIAZOLE
     Indication: Rheumatoid arthritis
  263. PHTHALYLSULFATHIAZOLE [Suspect]
     Active Substance: PHTHALYLSULFATHIAZOLE
  264. PHTHALYLSULFATHIAZOLE [Suspect]
     Active Substance: PHTHALYLSULFATHIAZOLE
  265. PHTHALYLSULFATHIAZOLE [Suspect]
     Active Substance: PHTHALYLSULFATHIAZOLE
  266. PHTHALYLSULFATHIAZOLE [Suspect]
     Active Substance: PHTHALYLSULFATHIAZOLE
  267. PHTHALYLSULFATHIAZOLE [Suspect]
     Active Substance: PHTHALYLSULFATHIAZOLE
  268. PHTHALYLSULFATHIAZOLE [Suspect]
     Active Substance: PHTHALYLSULFATHIAZOLE
  269. PHTHALYLSULFATHIAZOLE [Suspect]
     Active Substance: PHTHALYLSULFATHIAZOLE
  270. PHTHALYLSULFATHIAZOLE [Suspect]
     Active Substance: PHTHALYLSULFATHIAZOLE
  271. PHTHALYLSULFATHIAZOLE [Suspect]
     Active Substance: PHTHALYLSULFATHIAZOLE
  272. PHTHALYLSULFATHIAZOLE [Suspect]
     Active Substance: PHTHALYLSULFATHIAZOLE
  273. PHTHALYLSULFATHIAZOLE [Suspect]
     Active Substance: PHTHALYLSULFATHIAZOLE
  274. PHTHALYLSULFATHIAZOLE [Suspect]
     Active Substance: PHTHALYLSULFATHIAZOLE
  275. PHTHALYLSULFATHIAZOLE [Suspect]
     Active Substance: PHTHALYLSULFATHIAZOLE
  276. PREDNISONE [Suspect]
     Active Substance: PREDNISONE
     Indication: Rheumatoid arthritis
  277. PREDNISONE [Suspect]
     Active Substance: PREDNISONE
  278. PREDNISONE [Suspect]
     Active Substance: PREDNISONE
  279. PREDNISONE [Suspect]
     Active Substance: PREDNISONE
  280. PREDNISONE [Suspect]
     Active Substance: PREDNISONE
  281. PREDNISONE [Suspect]
     Active Substance: PREDNISONE
  282. PREDNISONE [Suspect]
     Active Substance: PREDNISONE
  283. PREDNISONE [Suspect]
     Active Substance: PREDNISONE
  284. PREDNISONE [Suspect]
     Active Substance: PREDNISONE
  285. PREDNISONE [Suspect]
     Active Substance: PREDNISONE
  286. PREDNISONE [Suspect]
     Active Substance: PREDNISONE
  287. PSEUDOEPHEDRINE HYDROCHLORIDE [Suspect]
     Active Substance: PSEUDOEPHEDRINE HYDROCHLORIDE
     Indication: Product used for unknown indication
  288. PSEUDOEPHEDRINE HYDROCHLORIDE [Suspect]
     Active Substance: PSEUDOEPHEDRINE HYDROCHLORIDE
  289. PSEUDOEPHEDRINE HYDROCHLORIDE [Suspect]
     Active Substance: PSEUDOEPHEDRINE HYDROCHLORIDE
  290. REMICADE [Suspect]
     Active Substance: INFLIXIMAB
     Indication: Rheumatoid arthritis
  291. REMICADE [Suspect]
     Active Substance: INFLIXIMAB
  292. REMICADE [Suspect]
     Active Substance: INFLIXIMAB
  293. REMICADE [Suspect]
     Active Substance: INFLIXIMAB
  294. REMICADE [Suspect]
     Active Substance: INFLIXIMAB
  295. REMICADE [Suspect]
     Active Substance: INFLIXIMAB
  296. REMICADE [Suspect]
     Active Substance: INFLIXIMAB
  297. REMICADE [Suspect]
     Active Substance: INFLIXIMAB
  298. REMICADE [Suspect]
     Active Substance: INFLIXIMAB
  299. REMICADE [Suspect]
     Active Substance: INFLIXIMAB
  300. RITUXIMAB [Suspect]
     Active Substance: RITUXIMAB
     Indication: Rheumatoid arthritis
  301. RITUXIMAB [Suspect]
     Active Substance: RITUXIMAB
  302. RITUXIMAB [Suspect]
     Active Substance: RITUXIMAB
  303. RITUXIMAB [Suspect]
     Active Substance: RITUXIMAB
  304. RITUXIMAB [Suspect]
     Active Substance: RITUXIMAB
  305. RITUXIMAB [Suspect]
     Active Substance: RITUXIMAB
  306. RITUXIMAB [Suspect]
     Active Substance: RITUXIMAB
  307. RITUXIMAB [Suspect]
     Active Substance: RITUXIMAB
  308. RITUXIMAB [Suspect]
     Active Substance: RITUXIMAB
  309. RITUXIMAB [Suspect]
     Active Substance: RITUXIMAB
  310. RITUXIMAB [Suspect]
     Active Substance: RITUXIMAB
  311. RITUXIMAB [Suspect]
     Active Substance: RITUXIMAB
  312. SULFASALAZINE [Suspect]
     Active Substance: SULFASALAZINE
     Indication: Rheumatoid arthritis
  313. SULFASALAZINE [Suspect]
     Active Substance: SULFASALAZINE
  314. SULFASALAZINE [Suspect]
     Active Substance: SULFASALAZINE
  315. SULFASALAZINE [Suspect]
     Active Substance: SULFASALAZINE
  316. SULFASALAZINE [Suspect]
     Active Substance: SULFASALAZINE
  317. SULFASALAZINE [Suspect]
     Active Substance: SULFASALAZINE
  318. SULFASALAZINE [Suspect]
     Active Substance: SULFASALAZINE
  319. SULFASALAZINE [Suspect]
     Active Substance: SULFASALAZINE
  320. SULFASALAZINE [Suspect]
     Active Substance: SULFASALAZINE
  321. SULFASALAZINE [Suspect]
     Active Substance: SULFASALAZINE
  322. SULFASALAZINE [Suspect]
     Active Substance: SULFASALAZINE
  323. SULFASALAZINE [Suspect]
     Active Substance: SULFASALAZINE
  324. SULFASALAZINE [Suspect]
     Active Substance: SULFASALAZINE
  325. SULFASALAZINE [Suspect]
     Active Substance: SULFASALAZINE
  326. SULFASALAZINE [Suspect]
     Active Substance: SULFASALAZINE
     Dosage: CYCLICAL
  327. SULFASALAZINE [Suspect]
     Active Substance: SULFASALAZINE
  328. SULFASALAZINE [Suspect]
     Active Substance: SULFASALAZINE
  329. SULFASALAZINE [Suspect]
     Active Substance: SULFASALAZINE
  330. SULFASALAZINE [Suspect]
     Active Substance: SULFASALAZINE
  331. SULFASALAZINE [Suspect]
     Active Substance: SULFASALAZINE
  332. SULFASALAZINE [Suspect]
     Active Substance: SULFASALAZINE
  333. SULFASALAZINE [Suspect]
     Active Substance: SULFASALAZINE
  334. SULFASALAZINE [Suspect]
     Active Substance: SULFASALAZINE
  335. SULFASALAZINE [Suspect]
     Active Substance: SULFASALAZINE
  336. SULFASALAZINE [Suspect]
     Active Substance: SULFASALAZINE
  337. SULFASALAZINE [Suspect]
     Active Substance: SULFASALAZINE
  338. SULFASALAZINE [Suspect]
     Active Substance: SULFASALAZINE
  339. SULFASALAZINE [Suspect]
     Active Substance: SULFASALAZINE
  340. SULFASALAZINE [Suspect]
     Active Substance: SULFASALAZINE
  341. SULFASALAZINE [Suspect]
     Active Substance: SULFASALAZINE
  342. SULFASALAZINE [Suspect]
     Active Substance: SULFASALAZINE
  343. SIMPONI [Suspect]
     Active Substance: GOLIMUMAB
     Indication: Rheumatoid arthritis
  344. SIMPONI [Suspect]
     Active Substance: GOLIMUMAB
  345. SIMPONI [Suspect]
     Active Substance: GOLIMUMAB
  346. SIMPONI [Suspect]
     Active Substance: GOLIMUMAB
  347. SIMPONI [Suspect]
     Active Substance: GOLIMUMAB
     Route: 042
  348. SIMPONI [Suspect]
     Active Substance: GOLIMUMAB
     Route: 058
  349. SIMPONI [Suspect]
     Active Substance: GOLIMUMAB
     Route: 058
  350. SIMPONI [Suspect]
     Active Substance: GOLIMUMAB
     Route: 042
  351. SIMPONI [Suspect]
     Active Substance: GOLIMUMAB
     Route: 065
  352. SIMPONI [Suspect]
     Active Substance: GOLIMUMAB
  353. SIMPONI [Suspect]
     Active Substance: GOLIMUMAB
  354. SIMPONI [Suspect]
     Active Substance: GOLIMUMAB
  355. SULFATHALIDINE [Suspect]
     Active Substance: PHTHALYLSULFATHIAZOLE
     Indication: Rheumatoid arthritis
  356. SULFATHALIDINE [Suspect]
     Active Substance: PHTHALYLSULFATHIAZOLE
  357. SULFATHALIDINE [Suspect]
     Active Substance: PHTHALYLSULFATHIAZOLE
  358. SULFATHALIDINE [Suspect]
     Active Substance: PHTHALYLSULFATHIAZOLE
  359. SULFATHALIDINE [Suspect]
     Active Substance: PHTHALYLSULFATHIAZOLE
  360. TOPICORT [Suspect]
     Active Substance: DESOXIMETASONE
     Indication: Rheumatoid arthritis
  361. TOPICORT [Suspect]
     Active Substance: DESOXIMETASONE
  362. TOPICORT [Suspect]
     Active Substance: DESOXIMETASONE
  363. TOPICORT [Suspect]
     Active Substance: DESOXIMETASONE
  364. TOPICORT [Suspect]
     Active Substance: DESOXIMETASONE
  365. TOPICORT [Suspect]
     Active Substance: DESOXIMETASONE
  366. TOPICORT [Suspect]
     Active Substance: DESOXIMETASONE
  367. FOSAMAX [Suspect]
     Active Substance: ALENDRONATE SODIUM
     Indication: Product used for unknown indication
  368. FOSAMAX [Suspect]
     Active Substance: ALENDRONATE SODIUM
  369. FOSAMAX [Suspect]
     Active Substance: ALENDRONATE SODIUM
  370. FOSAMAX [Suspect]
     Active Substance: ALENDRONATE SODIUM
  371. PREDNISONE [Suspect]
     Active Substance: PREDNISONE
     Indication: Rheumatoid arthritis
  372. PREDNISONE [Suspect]
     Active Substance: PREDNISONE
  373. PREDNISONE [Suspect]
     Active Substance: PREDNISONE
  374. PREDNISONE [Suspect]
     Active Substance: PREDNISONE
  375. PREDNISONE [Suspect]
     Active Substance: PREDNISONE
  376. PREDNISONE [Suspect]
     Active Substance: PREDNISONE
  377. PREDNISONE [Suspect]
     Active Substance: PREDNISONE
     Dosage: DOSE: 5
  378. PREDNISONE [Suspect]
     Active Substance: PREDNISONE
  379. TOFACITINIB CITRATE [Suspect]
     Active Substance: TOFACITINIB CITRATE
     Indication: Rheumatoid arthritis
  380. TOFACITINIB CITRATE [Suspect]
     Active Substance: TOFACITINIB CITRATE
  381. TOFACITINIB CITRATE [Suspect]
     Active Substance: TOFACITINIB CITRATE
  382. TOFACITINIB CITRATE [Suspect]
     Active Substance: TOFACITINIB CITRATE
  383. TOFACITINIB CITRATE [Suspect]
     Active Substance: TOFACITINIB CITRATE
  384. TOFACITINIB CITRATE [Suspect]
     Active Substance: TOFACITINIB CITRATE
  385. TOFACITINIB CITRATE [Suspect]
     Active Substance: TOFACITINIB CITRATE
  386. TOFACITINIB CITRATE [Suspect]
     Active Substance: TOFACITINIB CITRATE
  387. RITUXAN [Suspect]
     Active Substance: RITUXIMAB
     Indication: Rheumatoid arthritis
  388. RITUXAN [Suspect]
     Active Substance: RITUXIMAB
  389. RITUXAN [Suspect]
     Active Substance: RITUXIMAB
  390. CETIRIZINE HYDROCHLORIDE\PSEUDOEPHEDRINE HYDROCHLORIDE [Suspect]
     Active Substance: CETIRIZINE HYDROCHLORIDE\PSEUDOEPHEDRINE HYDROCHLORIDE
     Indication: Rheumatoid arthritis
  391. CETIRIZINE HYDROCHLORIDE\PSEUDOEPHEDRINE HYDROCHLORIDE [Suspect]
     Active Substance: CETIRIZINE HYDROCHLORIDE\PSEUDOEPHEDRINE HYDROCHLORIDE
  392. CETIRIZINE HYDROCHLORIDE\PSEUDOEPHEDRINE HYDROCHLORIDE [Suspect]
     Active Substance: CETIRIZINE HYDROCHLORIDE\PSEUDOEPHEDRINE HYDROCHLORIDE
  393. CETIRIZINE HYDROCHLORIDE\PSEUDOEPHEDRINE HYDROCHLORIDE [Suspect]
     Active Substance: CETIRIZINE HYDROCHLORIDE\PSEUDOEPHEDRINE HYDROCHLORIDE
  394. HYDROXYCHLOROQUINE SULFATE [Suspect]
     Active Substance: HYDROXYCHLOROQUINE SULFATE
     Indication: Rheumatoid arthritis
  395. HYDROXYCHLOROQUINE SULFATE [Suspect]
     Active Substance: HYDROXYCHLOROQUINE SULFATE
  396. HYDROXYCHLOROQUINE SULFATE [Suspect]
     Active Substance: HYDROXYCHLOROQUINE SULFATE
  397. HYDROXYCHLOROQUINE SULFATE [Suspect]
     Active Substance: HYDROXYCHLOROQUINE SULFATE
  398. HYDROXYCHLOROQUINE SULFATE [Suspect]
     Active Substance: HYDROXYCHLOROQUINE SULFATE
  399. HYDROXYCHLOROQUINE SULFATE [Suspect]
     Active Substance: HYDROXYCHLOROQUINE SULFATE
  400. HYDROXYCHLOROQUINE SULFATE [Suspect]
     Active Substance: HYDROXYCHLOROQUINE SULFATE
  401. HYDROXYCHLOROQUINE SULFATE [Suspect]
     Active Substance: HYDROXYCHLOROQUINE SULFATE
  402. HYDROXYCHLOROQUINE SULFATE [Suspect]
     Active Substance: HYDROXYCHLOROQUINE SULFATE
  403. HYDROXYCHLOROQUINE SULFATE [Suspect]
     Active Substance: HYDROXYCHLOROQUINE SULFATE
  404. HYDROXYCHLOROQUINE SULFATE [Suspect]
     Active Substance: HYDROXYCHLOROQUINE SULFATE
  405. HYDROXYCHLOROQUINE SULFATE [Suspect]
     Active Substance: HYDROXYCHLOROQUINE SULFATE
  406. HYDROXYCHLOROQUINE SULFATE [Suspect]
     Active Substance: HYDROXYCHLOROQUINE SULFATE
  407. HYDROXYCHLOROQUINE SULFATE [Suspect]
     Active Substance: HYDROXYCHLOROQUINE SULFATE
  408. HYDROXYCHLOROQUINE SULFATE [Suspect]
     Active Substance: HYDROXYCHLOROQUINE SULFATE
  409. HYDROXYCHLOROQUINE SULFATE [Suspect]
     Active Substance: HYDROXYCHLOROQUINE SULFATE
  410. HYDROXYCHLOROQUINE SULFATE [Suspect]
     Active Substance: HYDROXYCHLOROQUINE SULFATE
  411. HYDROXYCHLOROQUINE SULFATE [Suspect]
     Active Substance: HYDROXYCHLOROQUINE SULFATE
  412. HYDROXYCHLOROQUINE SULFATE [Suspect]
     Active Substance: HYDROXYCHLOROQUINE SULFATE
     Indication: Rheumatoid arthritis
  413. HYDROXYCHLOROQUINE SULFATE [Suspect]
     Active Substance: HYDROXYCHLOROQUINE SULFATE
  414. HYDROXYCHLOROQUINE SULFATE [Suspect]
     Active Substance: HYDROXYCHLOROQUINE SULFATE
  415. SARILUMAB [Suspect]
     Active Substance: SARILUMAB
     Indication: Rheumatoid arthritis
  416. STELARA [Suspect]
     Active Substance: USTEKINUMAB
     Indication: Rheumatoid arthritis
  417. STELARA [Suspect]
     Active Substance: USTEKINUMAB
  418. STELARA [Suspect]
     Active Substance: USTEKINUMAB
  419. STELARA [Suspect]
     Active Substance: USTEKINUMAB
  420. CERTOLIZUMAB PEGOL [Suspect]
     Active Substance: CERTOLIZUMAB PEGOL
     Indication: Rheumatoid arthritis
  421. CERTOLIZUMAB PEGOL [Suspect]
     Active Substance: CERTOLIZUMAB PEGOL
  422. CERTOLIZUMAB PEGOL [Suspect]
     Active Substance: CERTOLIZUMAB PEGOL
  423. CERTOLIZUMAB PEGOL [Suspect]
     Active Substance: CERTOLIZUMAB PEGOL
  424. CERTOLIZUMAB PEGOL [Suspect]
     Active Substance: CERTOLIZUMAB PEGOL
  425. CERTOLIZUMAB PEGOL [Suspect]
     Active Substance: CERTOLIZUMAB PEGOL
  426. DICLOFENAC SODIUM [Suspect]
     Active Substance: DICLOFENAC SODIUM
     Indication: Product used for unknown indication
  427. DICLOFENAC SODIUM [Suspect]
     Active Substance: DICLOFENAC SODIUM
  428. GOLIMUMAB [Suspect]
     Active Substance: GOLIMUMAB
     Indication: Rheumatoid arthritis
  429. GOLIMUMAB [Suspect]
     Active Substance: GOLIMUMAB
  430. GOLIMUMAB [Suspect]
     Active Substance: GOLIMUMAB
  431. GOLIMUMAB [Suspect]
     Active Substance: GOLIMUMAB
  432. GOLIMUMAB [Suspect]
     Active Substance: GOLIMUMAB
  433. GOLIMUMAB [Suspect]
     Active Substance: GOLIMUMAB
  434. ACETAMINOPHEN [Suspect]
     Active Substance: ACETAMINOPHEN
     Indication: Product used for unknown indication
  435. ACETAMINOPHEN [Suspect]
     Active Substance: ACETAMINOPHEN
  436. CORTISONE [Suspect]
     Active Substance: CORTISONE
     Indication: Product used for unknown indication
  437. LEFLUNOMIDE [Suspect]
     Active Substance: LEFLUNOMIDE
     Indication: Product used for unknown indication
  438. LEFLUNOMIDE [Suspect]
     Active Substance: LEFLUNOMIDE
  439. LEFLUNOMIDE [Suspect]
     Active Substance: LEFLUNOMIDE
  440. LEFLUNOMIDE [Suspect]
     Active Substance: LEFLUNOMIDE
  441. ZYRTEC-D [Suspect]
     Active Substance: CETIRIZINE HYDROCHLORIDE\PSEUDOEPHEDRINE HYDROCHLORIDE
     Indication: Product used for unknown indication
  442. CETIRIZINE [Suspect]
     Active Substance: CETIRIZINE HYDROCHLORIDE
     Indication: Rheumatoid arthritis
  443. CETIRIZINE [Suspect]
     Active Substance: CETIRIZINE HYDROCHLORIDE
  444. CETIRIZINE [Suspect]
     Active Substance: CETIRIZINE HYDROCHLORIDE
  445. CETIRIZINE [Suspect]
     Active Substance: CETIRIZINE HYDROCHLORIDE
  446. CETIRIZINE [Suspect]
     Active Substance: CETIRIZINE HYDROCHLORIDE
  447. CHLORHEXIDINE [Suspect]
     Active Substance: CHLORHEXIDINE
     Indication: Product used for unknown indication
  448. CHLORHEXIDINE [Suspect]
     Active Substance: CHLORHEXIDINE
  449. CHLORHEXIDINE [Suspect]
     Active Substance: CHLORHEXIDINE
  450. CHLORHEXIDINE [Suspect]
     Active Substance: CHLORHEXIDINE
  451. OXYCODONE [Suspect]
     Active Substance: OXYCODONE
     Indication: Product used for unknown indication
  452. OXYCODONE TEREPHTHALATE [Suspect]
     Active Substance: OXYCODONE TEREPHTHALATE
     Indication: Product used for unknown indication
  453. OXYCODONE AND ACETAMINOPHEN [Suspect]
     Active Substance: ACETAMINOPHEN\OXYCODONE HYDROCHLORIDE
     Indication: Product used for unknown indication
  454. PERIOGARD [Suspect]
     Active Substance: CHLORHEXIDINE GLUCONATE
     Indication: Product used for unknown indication
  455. PERIOGARD [Suspect]
     Active Substance: CHLORHEXIDINE GLUCONATE
  456. SULFAMETHOXAZOLE [Suspect]
     Active Substance: SULFAMETHOXAZOLE
     Indication: Product used for unknown indication
  457. SULFAMETHOXAZOLE [Suspect]
     Active Substance: SULFAMETHOXAZOLE
  458. SULFAMETHOXAZOLE AND TRIMETHOPRIM [Suspect]
     Active Substance: SULFAMETHOXAZOLE\TRIMETHOPRIM
     Indication: Product used for unknown indication
  459. CELEBREX [Suspect]
     Active Substance: CELECOXIB
     Indication: Rheumatoid arthritis
  460. CELEBREX [Suspect]
     Active Substance: CELECOXIB
  461. CELEBREX [Suspect]
     Active Substance: CELECOXIB
  462. CELEBREX [Suspect]
     Active Substance: CELECOXIB
  463. CELEBREX [Suspect]
     Active Substance: CELECOXIB
  464. HYDROCORTISONE SODIUM SUCCINATE [Suspect]
     Active Substance: HYDROCORTISONE SODIUM SUCCINATE
     Indication: Rheumatoid arthritis
  465. XELJANZ [Suspect]
     Active Substance: TOFACITINIB CITRATE
     Indication: Rheumatoid arthritis
  466. XELJANZ [Suspect]
     Active Substance: TOFACITINIB CITRATE
  467. XELJANZ [Suspect]
     Active Substance: TOFACITINIB CITRATE
  468. XELJANZ [Suspect]
     Active Substance: TOFACITINIB CITRATE
  469. XELJANZ [Suspect]
     Active Substance: TOFACITINIB CITRATE
  470. XELJANZ [Suspect]
     Active Substance: TOFACITINIB CITRATE
  471. XELJANZ [Suspect]
     Active Substance: TOFACITINIB CITRATE
  472. XELJANZ [Suspect]
     Active Substance: TOFACITINIB CITRATE
  473. XELJANZ [Suspect]
     Active Substance: TOFACITINIB CITRATE
  474. XELJANZ [Suspect]
     Active Substance: TOFACITINIB CITRATE
  475. INFLIXIMAB [Suspect]
     Active Substance: INFLIXIMAB
     Indication: Rheumatoid arthritis
  476. INFLIXIMAB [Suspect]
     Active Substance: INFLIXIMAB
  477. LYRICA [Suspect]
     Active Substance: PREGABALIN
     Indication: Fibromyalgia
  478. OTEZLA [Suspect]
     Active Substance: APREMILAST
     Indication: Product used for unknown indication
  479. OTEZLA [Suspect]
     Active Substance: APREMILAST
  480. OTEZLA [Suspect]
     Active Substance: APREMILAST
  481. COSENTYX [Suspect]
     Active Substance: SECUKINUMAB
     Indication: Psoriatic arthropathy
  482. COSENTYX [Suspect]
     Active Substance: SECUKINUMAB
  483. COSENTYX [Suspect]
     Active Substance: SECUKINUMAB
  484. COSENTYX [Suspect]
     Active Substance: SECUKINUMAB
  485. COSENTYX [Suspect]
     Active Substance: SECUKINUMAB
  486. APREMILAST [Suspect]
     Active Substance: APREMILAST
     Indication: Product used for unknown indication
  487. ERELZI [Suspect]
     Active Substance: ETANERCEPT-SZZS
     Indication: Rheumatoid arthritis
  488. ERELZI [Suspect]
     Active Substance: ETANERCEPT-SZZS
  489. ERELZI [Suspect]
     Active Substance: ETANERCEPT-SZZS
  490. KEVZARA [Suspect]
     Active Substance: SARILUMAB
     Indication: Rheumatoid arthritis
  491. FLUMETHASONE PIVALATE [Suspect]
     Active Substance: FLUMETHASONE PIVALATE
     Indication: Rheumatoid arthritis
  492. MYCOPHENOLATE MOFETIL [Suspect]
     Active Substance: MYCOPHENOLATE MOFETIL
     Indication: Product used for unknown indication
  493. TOCILIZUMAB [Suspect]
     Active Substance: TOCILIZUMAB
     Indication: Rheumatoid arthritis
  494. TOCILIZUMAB [Suspect]
     Active Substance: TOCILIZUMAB
  495. TOCILIZUMAB [Suspect]
     Active Substance: TOCILIZUMAB
  496. TOCILIZUMAB [Suspect]
     Active Substance: TOCILIZUMAB
  497. TOCILIZUMAB [Suspect]
     Active Substance: TOCILIZUMAB
  498. TOCILIZUMAB [Suspect]
     Active Substance: TOCILIZUMAB
  499. STELARA [Suspect]
     Active Substance: USTEKINUMAB
     Indication: Product used for unknown indication
  500. STELARA [Suspect]
     Active Substance: USTEKINUMAB
  501. STELARA [Suspect]
     Active Substance: USTEKINUMAB
  502. STELARA [Suspect]
     Active Substance: USTEKINUMAB
  503. NAPROXEN SODIUM [Suspect]
     Active Substance: NAPROXEN SODIUM
     Indication: Rheumatoid arthritis
  504. NAPROXEN SODIUM [Suspect]
     Active Substance: NAPROXEN SODIUM
     Indication: Headache
  505. PREDNISONE [Suspect]
     Active Substance: PREDNISONE
     Indication: Rheumatoid arthritis
  506. ALENDRONIC ACID [Suspect]
     Active Substance: ALENDRONIC ACID
     Indication: Rheumatoid arthritis
  507. ALENDRONIC ACID [Suspect]
     Active Substance: ALENDRONIC ACID
  508. ALENDRONIC ACID [Suspect]
     Active Substance: ALENDRONIC ACID
  509. ALENDRONIC ACID [Suspect]
     Active Substance: ALENDRONIC ACID
  510. ALENDRONIC ACID [Suspect]
     Active Substance: ALENDRONIC ACID
  511. ALENDRONIC ACID [Suspect]
     Active Substance: ALENDRONIC ACID
  512. ALENDRONIC ACID [Suspect]
     Active Substance: ALENDRONIC ACID
  513. ALENDRONIC ACID [Suspect]
     Active Substance: ALENDRONIC ACID
  514. ALENDRONIC ACID [Suspect]
     Active Substance: ALENDRONIC ACID
  515. ALENDRONIC ACID [Suspect]
     Active Substance: ALENDRONIC ACID
  516. ALENDRONIC ACID [Suspect]
     Active Substance: ALENDRONIC ACID
  517. ALENDRONIC ACID [Suspect]
     Active Substance: ALENDRONIC ACID
  518. ALENDRONIC ACID [Suspect]
     Active Substance: ALENDRONIC ACID
  519. ALENDRONIC ACID [Suspect]
     Active Substance: ALENDRONIC ACID
  520. ADALIMUMAB [Suspect]
     Active Substance: ADALIMUMAB
     Indication: Rheumatoid arthritis
  521. ADALIMUMAB [Suspect]
     Active Substance: ADALIMUMAB
  522. ADALIMUMAB [Suspect]
     Active Substance: ADALIMUMAB
  523. ADALIMUMAB [Suspect]
     Active Substance: ADALIMUMAB
  524. CORTISONE ACETATE [Suspect]
     Active Substance: CORTISONE ACETATE
     Indication: Rheumatoid arthritis
  525. ABATACEPT [Suspect]
     Active Substance: ABATACEPT
     Indication: Product used for unknown indication
  526. CHLORAPREP [Suspect]
     Active Substance: CHLORHEXIDINE GLUCONATE\ISOPROPYL ALCOHOL
     Indication: Product used for unknown indication
  527. CALCIUM CARBONATE [Suspect]
     Active Substance: CALCIUM CARBONATE
     Indication: Product used for unknown indication
  528. CALCIUM CARBONATE [Suspect]
     Active Substance: CALCIUM CARBONATE
  529. CALCIUM CARBONATE [Suspect]
     Active Substance: CALCIUM CARBONATE
  530. HYDROCORTISONE ACETATE [Suspect]
     Active Substance: HYDROCORTISONE ACETATE
     Indication: Rheumatoid arthritis
  531. HYDROCORTISONE ACETATE [Suspect]
     Active Substance: HYDROCORTISONE ACETATE
  532. HYDROCORTISONE ACETATE [Suspect]
     Active Substance: HYDROCORTISONE ACETATE
  533. HYDROCORTISONE ACETATE [Suspect]
     Active Substance: HYDROCORTISONE ACETATE
  534. HYDROCORTISONE ACETATE [Suspect]
     Active Substance: HYDROCORTISONE ACETATE
  535. VITAMIN C [Suspect]
     Active Substance: ASCORBIC ACID
     Indication: Product used for unknown indication
  536. PANTOPRAZOLE [Suspect]
     Active Substance: PANTOPRAZOLE
     Indication: Product used for unknown indication
  537. PANTOPRAZOLE [Suspect]
     Active Substance: PANTOPRAZOLE
  538. PANTOPRAZOLE [Suspect]
     Active Substance: PANTOPRAZOLE
  539. PANTOPRAZOLE [Suspect]
     Active Substance: PANTOPRAZOLE
  540. PANTOPRAZOLE [Suspect]
     Active Substance: PANTOPRAZOLE
  541. PANTOPRAZOLE [Suspect]
     Active Substance: PANTOPRAZOLE
  542. PANTOPRAZOLE [Suspect]
     Active Substance: PANTOPRAZOLE
  543. PANTOPRAZOLE [Suspect]
     Active Substance: PANTOPRAZOLE
  544. PANTOPRAZOLE [Suspect]
     Active Substance: PANTOPRAZOLE
  545. PANTOPRAZOLE [Suspect]
     Active Substance: PANTOPRAZOLE
  546. PANTOPRAZOLE [Suspect]
     Active Substance: PANTOPRAZOLE
  547. PANTOPRAZOLE [Suspect]
     Active Substance: PANTOPRAZOLE
  548. PANTOPRAZOLE [Suspect]
     Active Substance: PANTOPRAZOLE
  549. PANTOPRAZOLE [Suspect]
     Active Substance: PANTOPRAZOLE
  550. PANTOPRAZOLE [Suspect]
     Active Substance: PANTOPRAZOLE
  551. PANTOPRAZOLE [Suspect]
     Active Substance: PANTOPRAZOLE
  552. PANTOPRAZOLE [Suspect]
     Active Substance: PANTOPRAZOLE
  553. PANTOPRAZOLE [Suspect]
     Active Substance: PANTOPRAZOLE
  554. CALCIUM [Suspect]
     Active Substance: CALCIUM
  555. DOXYCYCLINE [Suspect]
     Active Substance: DOXYCYCLINE
     Indication: Product used for unknown indication
  556. QUETIAPINE [Suspect]
     Active Substance: QUETIAPINE
     Indication: Product used for unknown indication
  557. QUETIAPINE [Suspect]
     Active Substance: QUETIAPINE
  558. RAMIPRIL [Suspect]
     Active Substance: RAMIPRIL
     Indication: Product used for unknown indication
  559. RAMIPRIL [Suspect]
     Active Substance: RAMIPRIL
  560. VITAMIN D3 [Suspect]
     Active Substance: CHOLECALCIFEROL
     Indication: Product used for unknown indication
  561. VITAMIN D3 [Suspect]
     Active Substance: CHOLECALCIFEROL
  562. VITAMIN D3 [Suspect]
     Active Substance: CHOLECALCIFEROL
  563. VITAMIN D3 [Suspect]
     Active Substance: CHOLECALCIFEROL
  564. VITAMIN D3 [Suspect]
     Active Substance: CHOLECALCIFEROL
  565. VITAMIN D3 [Suspect]
     Active Substance: CHOLECALCIFEROL
  566. VITAMIN D3 [Suspect]
     Active Substance: CHOLECALCIFEROL
  567. VITAMIN D3 [Suspect]
     Active Substance: CHOLECALCIFEROL
  568. PANTOPRAZOLE SODIUM ANHYDROUS [Suspect]
     Active Substance: PANTOPRAZOLE SODIUM ANHYDROUS
     Indication: Product used for unknown indication
  569. PANTOPRAZOLE SODIUM ANHYDROUS [Suspect]
     Active Substance: PANTOPRAZOLE SODIUM ANHYDROUS
  570. PANTOPRAZOLE SODIUM ANHYDROUS [Suspect]
     Active Substance: PANTOPRAZOLE SODIUM ANHYDROUS
  571. CALCIUM GLUBIONATE [Suspect]
     Active Substance: CALCIUM GLUBIONATE
     Indication: Product used for unknown indication
  572. CALCIUM GLUBIONATE [Suspect]
     Active Substance: CALCIUM GLUBIONATE
  573. CALCIUM GLUBIONATE [Suspect]
     Active Substance: CALCIUM GLUBIONATE
  574. INFLIXIMAB [Suspect]
     Active Substance: INFLIXIMAB
     Indication: Rheumatoid arthritis
  575. INFLIXIMAB [Suspect]
     Active Substance: INFLIXIMAB
  576. INFLIXIMAB [Suspect]
     Active Substance: INFLIXIMAB
  577. DOXYCYCLINE HYCLATE [Suspect]
     Active Substance: DOXYCYCLINE HYCLATE
     Indication: Product used for unknown indication
  578. DIETARY SUPPLEMENT [Suspect]
     Active Substance: DIETARY SUPPLEMENT
     Indication: Product used for unknown indication
  579. DIETARY SUPPLEMENT [Suspect]
     Active Substance: DIETARY SUPPLEMENT
  580. HYALURONIDASE (HUMAN RECOMBINANT)\RITUXIMAB [Suspect]
     Active Substance: HYALURONIDASE (HUMAN RECOMBINANT)\RITUXIMAB
     Indication: Rheumatoid arthritis
  581. HYALURONIDASE (HUMAN RECOMBINANT)\RITUXIMAB [Suspect]
     Active Substance: HYALURONIDASE (HUMAN RECOMBINANT)\RITUXIMAB
  582. DICLOFENAC SODIUM [Suspect]
     Active Substance: DICLOFENAC SODIUM
     Indication: Product used for unknown indication
  583. ALENDRONATE SODIUM [Suspect]
     Active Substance: ALENDRONATE SODIUM
     Indication: Rheumatoid arthritis
  584. ALENDRONATE SODIUM [Suspect]
     Active Substance: ALENDRONATE SODIUM
  585. ALENDRONATE SODIUM [Suspect]
     Active Substance: ALENDRONATE SODIUM
  586. ALENDRONATE SODIUM [Suspect]
     Active Substance: ALENDRONATE SODIUM
  587. ALENDRONATE SODIUM [Suspect]
     Active Substance: ALENDRONATE SODIUM
  588. ALENDRONATE SODIUM [Suspect]
     Active Substance: ALENDRONATE SODIUM
  589. ALENDRONATE SODIUM [Suspect]
     Active Substance: ALENDRONATE SODIUM
  590. ALENDRONATE SODIUM [Suspect]
     Active Substance: ALENDRONATE SODIUM
  591. CETRIMIDE\CHLORHEXIDINE [Suspect]
     Active Substance: CETRIMIDE\CHLORHEXIDINE
     Indication: Product used for unknown indication
  592. TRAMADOL [Suspect]
     Active Substance: TRAMADOL
     Indication: Product used for unknown indication
  593. NEOMYCIN [Suspect]
     Active Substance: NEOMYCIN
     Indication: Product used for unknown indication
  594. CETIRIZINE HYDROCHLORIDE [Suspect]
     Active Substance: CETIRIZINE HYDROCHLORIDE
     Indication: Rheumatoid arthritis
  595. ISOPROPYL ALCOHOL [Suspect]
     Active Substance: ISOPROPYL ALCOHOL
     Indication: Product used for unknown indication
  596. CETIRIZINE HYDROCHLORIDE\PSEUDOEPHEDRINE HYDROCHLORIDE [Suspect]
     Active Substance: CETIRIZINE HYDROCHLORIDE\PSEUDOEPHEDRINE HYDROCHLORIDE
     Indication: Rheumatoid arthritis
  597. CETIRIZINE HYDROCHLORIDE\PSEUDOEPHEDRINE HYDROCHLORIDE [Suspect]
     Active Substance: CETIRIZINE HYDROCHLORIDE\PSEUDOEPHEDRINE HYDROCHLORIDE
  598. CETIRIZINE HYDROCHLORIDE\PSEUDOEPHEDRINE HYDROCHLORIDE [Suspect]
     Active Substance: CETIRIZINE HYDROCHLORIDE\PSEUDOEPHEDRINE HYDROCHLORIDE
  599. CETIRIZINE HYDROCHLORIDE\PSEUDOEPHEDRINE HYDROCHLORIDE [Suspect]
     Active Substance: CETIRIZINE HYDROCHLORIDE\PSEUDOEPHEDRINE HYDROCHLORIDE
  600. CETIRIZINE HYDROCHLORIDE\PSEUDOEPHEDRINE HYDROCHLORIDE [Suspect]
     Active Substance: CETIRIZINE HYDROCHLORIDE\PSEUDOEPHEDRINE HYDROCHLORIDE
  601. CETIRIZINE HYDROCHLORIDE\PSEUDOEPHEDRINE HYDROCHLORIDE [Suspect]
     Active Substance: CETIRIZINE HYDROCHLORIDE\PSEUDOEPHEDRINE HYDROCHLORIDE
  602. HYDROCORTISONE PROBUTATE [Suspect]
     Active Substance: HYDROCORTISONE PROBUTATE
     Indication: Product used for unknown indication
  603. APREPITANT [Suspect]
     Active Substance: APREPITANT
     Indication: Product used for unknown indication
  604. ACETAMINOPHEN [Suspect]
     Active Substance: ACETAMINOPHEN
     Indication: Product used for unknown indication
  605. FLUMETHASONE PIVALATE [Suspect]
     Active Substance: FLUMETHASONE PIVALATE
     Indication: Rheumatoid arthritis
  606. ALENDRONATE SODIUM\CHOLECALCIFEROL [Suspect]
     Active Substance: ALENDRONATE SODIUM\CHOLECALCIFEROL
     Indication: Rheumatoid arthritis
  607. ALENDRONATE SODIUM\CHOLECALCIFEROL [Suspect]
     Active Substance: ALENDRONATE SODIUM\CHOLECALCIFEROL
  608. LEFLUNOMIDE [Suspect]
     Active Substance: LEFLUNOMIDE
     Indication: Rheumatoid arthritis
  609. HYALURONIDASE (HUMAN RECOMBINANT) [Suspect]
     Active Substance: HYALURONIDASE (HUMAN RECOMBINANT)
     Indication: Rheumatoid arthritis
  610. HYALURONIDASE (HUMAN RECOMBINANT) [Suspect]
     Active Substance: HYALURONIDASE (HUMAN RECOMBINANT)
  611. CALCIUM ASCORBATE [Suspect]
     Active Substance: CALCIUM ASCORBATE
     Indication: Product used for unknown indication
  612. DICLOFENAC POTASSIUM [Suspect]
     Active Substance: DICLOFENAC POTASSIUM
     Indication: Product used for unknown indication
  613. DICLOFENAC DIETHYLAMINE [Suspect]
     Active Substance: DICLOFENAC DIETHYLAMINE
     Indication: Product used for unknown indication
  614. CALCIUM GLUCONATE [Suspect]
     Active Substance: CALCIUM GLUCONATE
     Indication: Product used for unknown indication
  615. PREDNISONE [Suspect]
     Active Substance: PREDNISONE
     Indication: Product used for unknown indication
  616. PREDNISONE [Suspect]
     Active Substance: PREDNISONE
  617. PREDNISONE [Suspect]
     Active Substance: PREDNISONE
  618. PREDNISONE [Suspect]
     Active Substance: PREDNISONE
  619. PREDNISONE [Suspect]
     Active Substance: PREDNISONE
  620. QUETIAPINE FUMARATE [Suspect]
     Active Substance: QUETIAPINE FUMARATE
     Indication: Product used for unknown indication
  621. QUETIAPINE FUMARATE [Suspect]
     Active Substance: QUETIAPINE FUMARATE
  622. QUETIAPINE FUMARATE [Suspect]
     Active Substance: QUETIAPINE FUMARATE
  623. QUETIAPINE FUMARATE [Suspect]
     Active Substance: QUETIAPINE FUMARATE
  624. QUETIAPINE FUMARATE [Suspect]
     Active Substance: QUETIAPINE FUMARATE
  625. QUETIAPINE FUMARATE [Suspect]
     Active Substance: QUETIAPINE FUMARATE
  626. QUETIAPINE FUMARATE [Suspect]
     Active Substance: QUETIAPINE FUMARATE
  627. CALCIUM LACTATE [Suspect]
     Active Substance: CALCIUM LACTATE
     Indication: Product used for unknown indication
  628. XELJANZ [Concomitant]
     Active Substance: TOFACITINIB CITRATE
     Indication: Rheumatoid arthritis
  629. XELJANZ [Concomitant]
     Active Substance: TOFACITINIB CITRATE
  630. XELJANZ [Concomitant]
     Active Substance: TOFACITINIB CITRATE
  631. XELJANZ [Concomitant]
     Active Substance: TOFACITINIB CITRATE
  632. XELJANZ [Concomitant]
     Active Substance: TOFACITINIB CITRATE
  633. XELJANZ [Concomitant]
     Active Substance: TOFACITINIB CITRATE
  634. XELJANZ [Concomitant]
     Active Substance: TOFACITINIB CITRATE
  635. XELJANZ [Concomitant]
     Active Substance: TOFACITINIB CITRATE
  636. VITAMIN D [Concomitant]
     Active Substance: VITAMIN D NOS
  637. FISH OIL [Concomitant]
     Active Substance: FISH OIL
  638. GLUCOSAMINE [Concomitant]
     Active Substance: GLUCOSAMINE
  639. GLUCOSAMINE [Concomitant]
     Active Substance: GLUCOSAMINE
  640. LANSOPRAZOLE [Concomitant]
     Active Substance: LANSOPRAZOLE
  641. LANSOPRAZOLE [Concomitant]
     Active Substance: LANSOPRAZOLE
  642. ATIVAN [Concomitant]
     Active Substance: LORAZEPAM
     Indication: Anxiety
     Dosage: AS NEEDED
  643. SULFASALAZINE [Concomitant]
     Active Substance: SULFASALAZINE
  644. SULFASALAZINE [Concomitant]
     Active Substance: SULFASALAZINE
  645. ACETAMINOPHEN\CAFFEINE\CODEINE PHOSPHATE [Concomitant]
     Active Substance: ACETAMINOPHEN\CAFFEINE\CODEINE PHOSPHATE
  646. ACETAMINOPHEN\CAFFEINE\CODEINE PHOSPHATE [Concomitant]
     Active Substance: ACETAMINOPHEN\CAFFEINE\CODEINE PHOSPHATE
  647. CODEINE PHOSPHATE [Concomitant]
     Active Substance: CODEINE PHOSPHATE
  648. CODEINE PHOSPHATE [Concomitant]
     Active Substance: CODEINE PHOSPHATE
  649. CAFFEINE [Concomitant]
     Active Substance: CAFFEINE
  650. CAFFEINE [Concomitant]
     Active Substance: CAFFEINE
  651. DESOGESTREL AND ETHINYL ESTRADIOL [Concomitant]
     Active Substance: DESOGESTREL\ETHINYL ESTRADIOL
  652. IBUPROFEN [Concomitant]
     Active Substance: IBUPROFEN
  653. PANTOPRAZOLE SODIUM [Concomitant]
     Active Substance: PANTOPRAZOLE SODIUM
  654. PANTOPRAZOLE SODIUM [Concomitant]
     Active Substance: PANTOPRAZOLE SODIUM
  655. PANTOPRAZOLE SODIUM [Concomitant]
     Active Substance: PANTOPRAZOLE SODIUM
  656. TYLENOL [Concomitant]
     Active Substance: ACETAMINOPHEN
  657. TYLENOL [Concomitant]
     Active Substance: ACETAMINOPHEN
  658. TYLENOL [Concomitant]
     Active Substance: ACETAMINOPHEN
  659. TYLENOL WITH CODEINE [Concomitant]
     Active Substance: ACETAMINOPHEN\CODEINE PHOSPHATE
  660. TYLENOL WITH CODEINE [Concomitant]
     Active Substance: ACETAMINOPHEN\CODEINE PHOSPHATE
  661. TYLENOL WITH CODEINE [Concomitant]
     Active Substance: ACETAMINOPHEN\CODEINE PHOSPHATE
  662. LEFLUNOMIDE [Concomitant]
     Active Substance: LEFLUNOMIDE
  663. LEFLUNOMIDE [Concomitant]
     Active Substance: LEFLUNOMIDE
  664. LEFLUNOMIDE [Concomitant]
     Active Substance: LEFLUNOMIDE
  665. LEFLUNOMIDE [Concomitant]
     Active Substance: LEFLUNOMIDE
  666. ATASOL [Concomitant]
  667. DEXAMETHASONE [Concomitant]
     Active Substance: DEXAMETHASONE
  668. LEVOTHYROXINE SODIUM [Concomitant]
     Active Substance: LEVOTHYROXINE SODIUM
  669. LISINOPRIL [Concomitant]
     Active Substance: LISINOPRIL
  670. MAGNESIUM [Concomitant]
     Active Substance: MAGNESIUM
  671. MELOXICAM [Concomitant]
     Active Substance: MELOXICAM
  672. PIROXICAM [Concomitant]
     Active Substance: PIROXICAM
  673. PREDNISOLONE [Concomitant]
     Active Substance: PREDNISOLONE
  674. RISEDRONATE SODIUM [Concomitant]
     Active Substance: RISEDRONATE SODIUM
  675. HYDROCORTISONE SODIUM SUCCINATE [Concomitant]
     Active Substance: HYDROCORTISONE SODIUM SUCCINATE
     Indication: Rheumatoid arthritis
  676. MARVELON [Concomitant]
     Active Substance: DESOGESTREL\ETHINYL ESTRADIOL
  677. ZOPICLONE [Concomitant]
     Active Substance: ZOPICLONE
  678. ZESTRIL [Concomitant]
     Active Substance: LISINOPRIL
  679. ALBUTEROL [Concomitant]
     Active Substance: ALBUTEROL
  680. QUETIAPINE FUMARATE [Concomitant]
     Active Substance: QUETIAPINE FUMARATE
  681. CHLOROQUINE [Concomitant]
     Active Substance: CHLOROQUINE
  682. CALCIUM GLUCONATE [Concomitant]
     Active Substance: CALCIUM GLUCONATE
  683. ACETAMINOPHEN AND CODEINE [Concomitant]
     Active Substance: ACETAMINOPHEN\CODEINE PHOSPHATE
  684. CAFFEINE CITRATE [Concomitant]
     Active Substance: CAFFEINE CITRATE
  685. CAFFEINE CITRATE [Concomitant]
     Active Substance: CAFFEINE CITRATE
  686. ZOPICLONE [Concomitant]
     Active Substance: ZOPICLONE
  687. ACETAMINOPHEN\PROPOXYPHENE HYDROCHLORIDE [Concomitant]
     Active Substance: ACETAMINOPHEN\PROPOXYPHENE HYDROCHLORIDE
  688. CHOLECALCIFEROL [Concomitant]
     Active Substance: CHOLECALCIFEROL
  689. HYDROCORTISONE ACETATE [Concomitant]
     Active Substance: HYDROCORTISONE ACETATE
     Indication: Rheumatoid arthritis
  690. HYDROCORTISONE ACETATE [Concomitant]
     Active Substance: HYDROCORTISONE ACETATE
  691. HYDROCORTISONE ACETATE [Concomitant]
     Active Substance: HYDROCORTISONE ACETATE
  692. HYDROCORTISONE ACETATE [Concomitant]
     Active Substance: HYDROCORTISONE ACETATE
  693. HYDROCORTISONE ACETATE [Concomitant]
     Active Substance: HYDROCORTISONE ACETATE
  694. SULFAMETHOXAZOLE AND TRIMETHOPRIM [Concomitant]
     Active Substance: SULFAMETHOXAZOLE\TRIMETHOPRIM
  695. RAMIPRIL [Concomitant]
     Active Substance: RAMIPRIL
  696. AZATHIOPRINE [Concomitant]
     Active Substance: AZATHIOPRINE
  697. MORPHINE [Concomitant]
     Active Substance: MORPHINE
     Indication: Rheumatoid arthritis
  698. ERYTHROMYCIN [Concomitant]
     Active Substance: ERYTHROMYCIN
  699. ETHINYL ESTRADIOL [Concomitant]
     Active Substance: ETHINYL ESTRADIOL
  700. HYDROCORTISONE [Concomitant]
     Active Substance: HYDROCORTISONE
     Indication: Rheumatoid arthritis
  701. HYDROCORTISONE [Concomitant]
     Active Substance: HYDROCORTISONE
  702. HYDROCORTISONE [Concomitant]
     Active Substance: HYDROCORTISONE
  703. DOXYCYCLINE [Concomitant]
     Active Substance: DOXYCYCLINE
  704. DOXYCYCLINE [Concomitant]
     Active Substance: DOXYCYCLINE
  705. ASCORBIC ACID [Concomitant]
     Active Substance: ASCORBIC ACID
  706. PREVACID [Concomitant]
     Active Substance: LANSOPRAZOLE
  707. PREVACID [Concomitant]
     Active Substance: LANSOPRAZOLE
  708. PANTOPRAZOLE SODIUM [Concomitant]
     Active Substance: PANTOPRAZOLE SODIUM
  709. TRIMETHOPRIM [Concomitant]
     Active Substance: TRIMETHOPRIM
  710. ALBUTEROL [Concomitant]
     Active Substance: ALBUTEROL
  711. FISH OIL [Concomitant]
     Active Substance: FISH OIL
  712. ERGOCALCIFEROL [Concomitant]
     Active Substance: ERGOCALCIFEROL
  713. LORAZEPAM [Concomitant]
     Active Substance: LORAZEPAM
  714. PANTOPRAZOLE SODIUM ANHYDROUS [Concomitant]
     Active Substance: PANTOPRAZOLE SODIUM ANHYDROUS

REACTIONS (133)
  - Off label use [Fatal]
  - Overdose [Not Recovered/Not Resolved]
  - Maternal exposure during pregnancy [Fatal]
  - Therapeutic product effect decreased [Not Recovered/Not Resolved]
  - Incorrect route of product administration [Not Recovered/Not Resolved]
  - Product use in unapproved indication [Fatal]
  - Contraindicated product administered [Fatal]
  - Treatment failure [Not Recovered/Not Resolved]
  - Drug ineffective [Not Recovered/Not Resolved]
  - Therapy non-responder [Unknown]
  - Product use issue [Not Recovered/Not Resolved]
  - Alopecia [Fatal]
  - Musculoskeletal stiffness [Not Recovered/Not Resolved]
  - Duodenal ulcer perforation [Fatal]
  - Fatigue [Not Recovered/Not Resolved]
  - Discomfort [Fatal]
  - Wound [Fatal]
  - Hand deformity [Fatal]
  - Adverse drug reaction [Not Recovered/Not Resolved]
  - Rheumatoid factor positive [Not Recovered/Not Resolved]
  - Arthralgia [Fatal]
  - Glossodynia [Fatal]
  - Knee arthroplasty [Fatal]
  - Hip arthroplasty [Fatal]
  - Hepatic enzyme increased [Not Recovered/Not Resolved]
  - Pain [Fatal]
  - Pemphigus [Fatal]
  - Pericarditis [Fatal]
  - Rash [Not Recovered/Not Resolved]
  - Swelling [Fatal]
  - Synovitis [Not Recovered/Not Resolved]
  - Systemic lupus erythematosus [Fatal]
  - Rheumatoid arthritis [Fatal]
  - Helicobacter infection [Fatal]
  - Hypersensitivity [Not Recovered/Not Resolved]
  - Condition aggravated [Not Recovered/Not Resolved]
  - Autoimmune disorder [Fatal]
  - Deep vein thrombosis postoperative [Not Recovered/Not Resolved]
  - Road traffic accident [Fatal]
  - Gait inability [Unknown]
  - Lower limb fracture [Fatal]
  - Asthma [Not Recovered/Not Resolved]
  - Arthropathy [Fatal]
  - Blister [Not Recovered/Not Resolved]
  - Confusional state [Not Recovered/Not Resolved]
  - Contusion [Not Recovered/Not Resolved]
  - Folliculitis [Not Recovered/Not Resolved]
  - Gastrointestinal disorder [Not Recovered/Not Resolved]
  - Impaired healing [Fatal]
  - Irritable bowel syndrome [Fatal]
  - Muscle injury [Fatal]
  - Sleep disorder due to general medical condition, insomnia type [Fatal]
  - Stomatitis [Fatal]
  - Weight increased [Fatal]
  - Diarrhoea [Not Recovered/Not Resolved]
  - Peripheral swelling [Not Recovered/Not Resolved]
  - Pruritus [Not Recovered/Not Resolved]
  - Pyrexia [Fatal]
  - Infection [Not Recovered/Not Resolved]
  - Nasopharyngitis [Fatal]
  - Lower respiratory tract infection [Fatal]
  - Sinusitis [Fatal]
  - Vomiting [Not Recovered/Not Resolved]
  - Type 2 diabetes mellitus [Fatal]
  - General physical health deterioration [Not Recovered/Not Resolved]
  - Dry mouth [Not Recovered/Not Resolved]
  - Night sweats [Fatal]
  - Lung disorder [Fatal]
  - Liver disorder [Not Recovered/Not Resolved]
  - Lip dry [Fatal]
  - Osteoarthritis [Fatal]
  - Asthenia [Not Recovered/Not Resolved]
  - Blood cholesterol increased [Not Recovered/Not Resolved]
  - C-reactive protein abnormal [Fatal]
  - Drug intolerance [Fatal]
  - Psoriatic arthropathy [Fatal]
  - Ill-defined disorder [Not Recovered/Not Resolved]
  - Headache [Fatal]
  - Hypertension [Fatal]
  - Hypoaesthesia [Fatal]
  - Liver injury [Fatal]
  - Malaise [Fatal]
  - Rheumatic fever [Fatal]
  - Sciatica [Fatal]
  - Fibromyalgia [Not Recovered/Not Resolved]
  - Facet joint syndrome [Not Recovered/Not Resolved]
  - Inflammation [Not Recovered/Not Resolved]
  - Muscle spasms [Not Recovered/Not Resolved]
  - Obesity [Not Recovered/Not Resolved]
  - Paraesthesia [Not Recovered/Not Resolved]
  - Peripheral venous disease [Not Recovered/Not Resolved]
  - Decreased appetite [Not Recovered/Not Resolved]
  - Lupus vulgaris [Not Recovered/Not Resolved]
  - Anxiety [Fatal]
  - Injury [Fatal]
  - Intentional product use issue [Fatal]
  - Prescribed overdose [Not Recovered/Not Resolved]
  - Respiratory disorder [Not Recovered/Not Resolved]
  - Delirium [Not Recovered/Not Resolved]
  - Bursitis [Not Recovered/Not Resolved]
  - Dizziness [Not Recovered/Not Resolved]
  - Nausea [Not Recovered/Not Resolved]
  - Ear pain [Not Recovered/Not Resolved]
  - Breast cancer stage II [Not Recovered/Not Resolved]
  - Adjustment disorder with depressed mood [Not Recovered/Not Resolved]
  - Amnesia [Not Recovered/Not Resolved]
  - Gait disturbance [Not Recovered/Not Resolved]
  - Dislocation of vertebra [Not Recovered/Not Resolved]
  - Depression [Not Recovered/Not Resolved]
  - Grip strength decreased [Not Recovered/Not Resolved]
  - Memory impairment [Not Recovered/Not Resolved]
  - Muscular weakness [Not Recovered/Not Resolved]
  - Weight decreased [Not Recovered/Not Resolved]
  - Wound infection [Not Recovered/Not Resolved]
  - Prescribed underdose [Unknown]
  - Medication error [Not Recovered/Not Resolved]
  - Drug hypersensitivity [Fatal]
  - Abdominal discomfort [Fatal]
  - Walking aid user [Unknown]
  - Swollen joint count increased [Not Recovered/Not Resolved]
  - Mobility decreased [Not Recovered/Not Resolved]
  - Dyspepsia [Not Recovered/Not Resolved]
  - Loss of personal independence in daily activities [Not Recovered/Not Resolved]
  - Pulmonary fibrosis [Not Recovered/Not Resolved]
  - Pneumonia [Not Recovered/Not Resolved]
  - Joint swelling [Fatal]
  - Anti-cyclic citrullinated peptide antibody [Fatal]
  - Musculoskeletal pain [Not Recovered/Not Resolved]
  - Joint range of motion decreased [Not Recovered/Not Resolved]
  - Abdominal pain upper [Not Recovered/Not Resolved]
  - Wheezing [Not Recovered/Not Resolved]
  - X-ray abnormal [Not Recovered/Not Resolved]
  - Migraine [Not Recovered/Not Resolved]
